FAERS Safety Report 25288778 (Version 1)
Quarter: 2025Q2

REPORT INFORMATION
  Report Type: Spontaneous
  Country: US (occurrence: US)
  Receive Date: 20250509
  Receipt Date: 20250509
  Transmission Date: 20250716
  Serious: No
  Sender: UCB
  Company Number: US-UCBSA-2024016059

PATIENT
  Sex: Female

DRUGS (1)
  1. CIMZIA [Suspect]
     Active Substance: CERTOLIZUMAB PEGOL
     Indication: Rheumatoid arthritis

REACTIONS (6)
  - Insomnia [Unknown]
  - Peripheral swelling [Unknown]
  - Gait disturbance [Unknown]
  - Pain [Unknown]
  - Product prescribing issue [Unknown]
  - Therapy interrupted [Unknown]
